FAERS Safety Report 19925608 (Version 7)
Quarter: 2022Q1

REPORT INFORMATION
  Report Type: Other
  Country: IT (occurrence: IT)
  Receive Date: 20211006
  Receipt Date: 20220307
  Transmission Date: 20220423
  Serious: Yes (Other)
  Sender: FDA-Public Use
  Company Number: IT-002147023-NVSC2021IT209133

PATIENT
  Age: 78 Year
  Sex: Female
  Weight: 74 kg

DRUGS (24)
  1. RITUXIMAB [Suspect]
     Active Substance: RITUXIMAB
     Indication: Product used for unknown indication
     Dosage: 649 MG, (RITUXIMAB IS ADMINISTERED ON DAY 1 EVERY CYCLE)
     Route: 042
     Dates: start: 20210525, end: 20210809
  2. RITUXIMAB [Suspect]
     Active Substance: RITUXIMAB
     Dosage: 649 MG (ON DAY 1 EVERY CYCLE)
     Route: 042
     Dates: end: 20211020
  3. RITUXIMAB [Suspect]
     Active Substance: RITUXIMAB
     Dosage: 649 MG (ON DAY 1 EVERY CYCLE)
     Route: 042
     Dates: end: 20211118
  4. FONDAPARINUX [Suspect]
     Active Substance: FONDAPARINUX
     Indication: Product used for unknown indication
     Dosage: UNK
     Route: 065
     Dates: start: 20210820, end: 20210913
  5. COPANLISIB [Suspect]
     Active Substance: COPANLISIB
     Indication: Product used for unknown indication
     Dosage: 45 MG, (ADMINISTERED ON DAYS 1, 8 AND 15 OF EVERY CYCLE)
     Route: 042
     Dates: start: 20210524, end: 20210823
  6. COPANLISIB [Suspect]
     Active Substance: COPANLISIB
     Dosage: 30 MG (ADMINISTERED ON DAYS 1, 8 AND 15 OF EVERY CYCLE))
     Route: 042
     Dates: end: 20211202
  7. COPANLISIB [Suspect]
     Active Substance: COPANLISIB
     Dosage: 30 MG, (ADMINISTERED ON DAYS 1, 8 AND 15 OF EVERY CYCLE)
     Route: 042
     Dates: end: 20211027
  8. BENDAMUSTINE [Suspect]
     Active Substance: BENDAMUSTINE
     Indication: Product used for unknown indication
     Dosage: 121 MG, (ADMINISTERED DAYS 1,2 EVERY CYCLE)
     Route: 042
     Dates: start: 20210525, end: 20210810
  9. BENDAMUSTINE [Suspect]
     Active Substance: BENDAMUSTINE
     Dosage: 121 MG, (ADMINISTERED DAYS 1,2 EVERY CYCLE)
     Route: 042
     Dates: end: 20211119
  10. BENDAMUSTINE [Suspect]
     Active Substance: BENDAMUSTINE
     Dosage: 121 MG, (ADMINISTERED DAYS 1,2 EVERY CYCLE)
     Route: 042
     Dates: end: 20211021
  11. BACTRIM [Suspect]
     Active Substance: SULFAMETHOXAZOLE\TRIMETHOPRIM
     Indication: Product used for unknown indication
     Dosage: UNK
     Route: 065
     Dates: start: 20210524, end: 20210906
  12. FLUCONAZOLE [Suspect]
     Active Substance: FLUCONAZOLE
     Indication: Product used for unknown indication
     Dosage: UNK
     Route: 065
     Dates: start: 20210524, end: 20210906
  13. ACYCLOVIR [Concomitant]
     Active Substance: ACYCLOVIR
     Indication: Product used for unknown indication
     Dosage: UNK
     Route: 065
     Dates: start: 20211118, end: 20211213
  14. CHOLECALCIFEROL [Concomitant]
     Active Substance: CHOLECALCIFEROL
     Indication: Product used for unknown indication
     Dosage: UNK
     Route: 065
  15. ERYTHROPOIETIN [Concomitant]
     Active Substance: ERYTHROPOIETIN
     Indication: Product used for unknown indication
     Dosage: UNK
     Route: 065
     Dates: start: 20210726
  16. LANSOPRAZOLE [Concomitant]
     Active Substance: LANSOPRAZOLE
     Indication: Product used for unknown indication
     Dosage: UNK
     Route: 065
     Dates: start: 20210524
  17. FUROSEMIDE [Concomitant]
     Active Substance: FUROSEMIDE
     Indication: Product used for unknown indication
     Dosage: UNK
     Route: 065
     Dates: start: 20210126
  18. PERINDOPRIL [Concomitant]
     Active Substance: PERINDOPRIL
     Indication: Product used for unknown indication
     Dosage: UNK
     Route: 065
     Dates: start: 20210531
  19. PERINDOPRIL [Concomitant]
     Active Substance: PERINDOPRIL
     Route: 065
     Dates: start: 20210126
  20. MEDROL [Concomitant]
     Active Substance: METHYLPREDNISOLONE
     Indication: Product used for unknown indication
     Dosage: 26 MG, QD
     Route: 048
     Dates: start: 20210809
  21. VALGANCICLOVIR [Concomitant]
     Active Substance: VALGANCICLOVIR
     Indication: Product used for unknown indication
     Dosage: UNK
     Route: 065
     Dates: start: 20210802, end: 20210913
  22. ATARAX [Concomitant]
     Active Substance: HYDROXYZINE HYDROCHLORIDE
     Indication: Product used for unknown indication
     Dosage: 25 MG (AS NEEDED)
     Route: 048
     Dates: start: 20210809
  23. OVIXAN [Concomitant]
     Indication: Product used for unknown indication
     Dosage: 100 MG
     Route: 061
     Dates: start: 20210831
  24. BILASTINE [Concomitant]
     Active Substance: BILASTINE
     Indication: Product used for unknown indication
     Dosage: 20 MG, QD
     Route: 048

REACTIONS (6)
  - Rash maculo-papular [Recovered/Resolved]
  - Cytomegalovirus infection reactivation [Recovered/Resolved]
  - Pruritus [Recovered/Resolved]
  - Erythema [Recovered/Resolved]
  - Decreased appetite [Unknown]
  - COVID-19 [Unknown]

NARRATIVE: CASE EVENT DATE: 20210829
